FAERS Safety Report 19139004 (Version 1)
Quarter: 2021Q2

REPORT INFORMATION
  Report Type: Spontaneous
  Country: US (occurrence: US)
  Receive Date: 20210414
  Receipt Date: 20210414
  Transmission Date: 20210717
  Serious: No
  Sender: FDA-Public Use
  Company Number: None

PATIENT
  Age: 34 Year
  Sex: Female
  Weight: 60.3 kg

DRUGS (1)
  1. METHOCARBAMOL. [Suspect]
     Active Substance: METHOCARBAMOL
     Indication: LIMB INJURY
     Dosage: ?          QUANTITY:4 TABLET(S);?
     Route: 048
     Dates: start: 20210315, end: 20210412

REACTIONS (2)
  - Memory impairment [None]
  - Lip disorder [None]

NARRATIVE: CASE EVENT DATE: 20210401
